FAERS Safety Report 15248895 (Version 2)
Quarter: 2018Q3

REPORT INFORMATION
  Report Type: Spontaneous
  Country: US (occurrence: US)
  Receive Date: 20180807
  Receipt Date: 20180809
  Transmission Date: 20181010
  Serious: Yes (Other)
  Sender: FDA-Public Use
  Company Number: US-PFIZER INC-2018309260

PATIENT
  Age: 41 Year
  Sex: Female

DRUGS (1)
  1. ZOLOFT [Suspect]
     Active Substance: SERTRALINE HYDROCHLORIDE
     Indication: ANXIETY
     Dosage: UNK (1/2 PILL FOR 1 WEEK AND THE 15 MG)
     Dates: end: 20180610

REACTIONS (8)
  - Suicidal ideation [Not Recovered/Not Resolved]
  - Anxiety [Unknown]
  - Thinking abnormal [Not Recovered/Not Resolved]
  - Agoraphobia [Unknown]
  - Hot flush [Unknown]
  - Condition aggravated [Unknown]
  - Insomnia [Unknown]
  - Urticaria [Not Recovered/Not Resolved]
